FAERS Safety Report 4872319-1 (Version None)
Quarter: 2006Q1

REPORT INFORMATION
  Report Type: 
  Country: None (occurrence: None)
  Receive Date: 20060104
  Receipt Date: 20051117
  Transmission Date: 20060701
  Serious: Yes (Death)
  Sender: FDA-Public Use
  Company Number: NL-NOVOPROD-248691

PATIENT
  Age: 59 Year
  Sex: Female
  Weight: 93 kg

DRUGS (7)
  1. FUROSEMIDE [Concomitant]
     Indication: PULMONARY OEDEMA
     Dates: start: 20051110
  2. AUGMENTIN [Concomitant]
     Indication: PULMONARY OEDEMA
     Dates: start: 20051110
  3. NOVOSEVEN [Suspect]
     Indication: CEREBRAL HAEMORRHAGE
     Dosage: 20 UG/KG, UNK
     Route: 042
     Dates: start: 20051108, end: 20051108
  4. METOPROLOL [Concomitant]
     Dosage: 100 MG, QD
     Route: 048
     Dates: start: 20051112, end: 20051116
  5. ENALAPRIL [Concomitant]
     Dosage: 10 MG, QD
     Route: 048
     Dates: start: 20051114, end: 20051116
  6. IPRATROPIUM BROMIDE [Concomitant]
     Dosage: 2.5 MG, QD
     Route: 055
     Dates: start: 20051115, end: 20051116
  7. SALBUTAMOL [Concomitant]
     Dosage: .5 MG, QD
     Route: 055
     Dates: start: 20051115, end: 20051116

REACTIONS (7)
  - AREFLEXIA [None]
  - BLOOD PRESSURE INCREASED [None]
  - CARDIAC ARREST [None]
  - PNEUMONIA [None]
  - PULMONARY EMBOLISM [None]
  - PULMONARY OEDEMA [None]
  - RESPIRATORY FAILURE [None]
